FAERS Safety Report 23183980 (Version 1)
Quarter: 2023Q4

REPORT INFORMATION
  Report Type: Spontaneous
  Country: ES (occurrence: ES)
  Receive Date: 20231114
  Receipt Date: 20231114
  Transmission Date: 20240110
  Serious: Yes (Hospitalization)
  Sender: FDA-Public Use
  Company Number: None

PATIENT
  Age: 71 Year
  Sex: Female

DRUGS (4)
  1. PACLITAXEL [Suspect]
     Active Substance: PACLITAXEL
     Indication: Invasive ductal breast carcinoma
     Dosage: 114 MG THE FIRST 2 DOSE (D1, D8), 86 MG THIRD DOSE (D15), PACLITAXEL (2698A)
     Dates: start: 20230710, end: 20230725
  2. ATORVASTATIN [Suspect]
     Active Substance: ATORVASTATIN
     Indication: Dyslipidaemia
     Dosage: 40 MILLIGRAM DAILY; 1 PER DAY, ATORVASTATINA (7400A)
     Dates: start: 20230710, end: 20230801
  3. OMEPRAZOLE [Suspect]
     Active Substance: OMEPRAZOLE
     Indication: Prophylaxis
     Dosage: 20 MILLIGRAM DAILY; 1 PER DAY, OMEPRAZOL (2141A)
     Dates: start: 20230710, end: 20230801
  4. CARBOPLATIN [Suspect]
     Active Substance: CARBOPLATIN
     Indication: Invasive ductal breast carcinoma
     Dosage: 400 MG DU, CARBOPLATINO (2323A)
     Dates: start: 20230710, end: 20230710

REACTIONS (1)
  - Mixed liver injury [Recovered/Resolved]

NARRATIVE: CASE EVENT DATE: 20230724
